FAERS Safety Report 6457693-7 (Version None)
Quarter: 2009Q4

REPORT INFORMATION
  Report Type: 
  Country: None (occurrence: None)
  Receive Date: 20091125
  Receipt Date: 20091117
  Transmission Date: 20100525
  Serious: Yes (Other)
  Sender: FDA-Public Use
  Company Number: DE-AMGEN-UK369288

PATIENT
  Age: 36 Year
  Sex: Female
  Weight: 91 kg

DRUGS (9)
  1. ARANESP [Suspect]
     Indication: ANAEMIA
     Route: 042
     Dates: start: 20081121
  2. AMLODIPINE [Concomitant]
     Route: 048
  3. MINOXIDIL [Concomitant]
     Route: 065
  4. BELOC ZOK [Concomitant]
     Route: 065
  5. TORASEMIDE [Concomitant]
     Route: 065
  6. OMEPRAZOLE [Concomitant]
     Route: 065
  7. VENOFER [Concomitant]
     Route: 042
  8. ASCORBIC ACID [Concomitant]
     Route: 042
     Dates: start: 20090824
  9. FOLIC ACID [Concomitant]
     Route: 042
     Dates: start: 20090824

REACTIONS (2)
  - APLASIA PURE RED CELL [None]
  - HAEMOGLOBIN DECREASED [None]
